FAERS Safety Report 17586947 (Version 1)
Quarter: 2020Q1

REPORT INFORMATION
  Report Type: Spontaneous
  Country: US (occurrence: US)
  Receive Date: 20200326
  Receipt Date: 20200326
  Transmission Date: 20200409
  Serious: Yes (Hospitalization)
  Sender: FDA-Public Use
  Company Number: US-BAYER-2020-045642

PATIENT
  Age: 53 Year
  Sex: Female

DRUGS (21)
  1. HYDROCODONE;PARACETAMOL [Concomitant]
     Dosage: UNK
     Dates: start: 20110605, end: 20170327
  2. HYDROCODONE;PARACETAMOL [Concomitant]
     Dosage: UNK
     Dates: start: 20100708, end: 20180315
  3. AVELOX [Suspect]
     Active Substance: MOXIFLOXACIN HYDROCHLORIDE
     Dosage: 400 MG, UNK
     Dates: start: 20100114
  4. AVELOX [Suspect]
     Active Substance: MOXIFLOXACIN HYDROCHLORIDE
     Dosage: 400 MG, UNK
     Dates: start: 20100212
  5. CIPRO [Suspect]
     Active Substance: CIPROFLOXACIN HYDROCHLORIDE
     Dosage: 500 MG, UNK
     Route: 048
     Dates: start: 20110220
  6. AVELOX [Suspect]
     Active Substance: MOXIFLOXACIN HYDROCHLORIDE
     Dosage: 400 MG, UNK
     Dates: start: 20100201
  7. AVELOX [Suspect]
     Active Substance: MOXIFLOXACIN HYDROCHLORIDE
     Dosage: 400 MG, UNK
     Dates: start: 20100303
  8. OMEPRAZOLE. [Concomitant]
     Active Substance: OMEPRAZOLE
     Dosage: 20 MG, UNK
  9. NABUMETON [Concomitant]
     Dosage: UNK
     Dates: start: 20100201, end: 20110122
  10. IBUPROFEN. [Concomitant]
     Active Substance: IBUPROFEN
     Dosage: 800 MG, UNK
     Dates: start: 20130511
  11. HYDROCODONE;PARACETAMOL [Concomitant]
     Dosage: UNK
     Dates: start: 20120531
  12. HYDROCODONE;PARACETAMOL [Concomitant]
     Dosage: UNK
     Dates: start: 20130418, end: 20180614
  13. HYDROCODONE;PARACETAMOL [Concomitant]
     Dosage: UNK
     Dates: start: 20110823, end: 20111005
  14. HYDROCODONE;PARACETAMOL [Concomitant]
     Dosage: UNK
     Dates: start: 20111026
  15. HYDROCODONE;PARACETAMOL [Concomitant]
     Dosage: UNK
     Dates: start: 20090505, end: 20111114
  16. HYDROCODONE;PARACETAMOL [Concomitant]
     Dosage: UNK
     Dates: start: 20120417
  17. AVELOX [Suspect]
     Active Substance: MOXIFLOXACIN HYDROCHLORIDE
     Dosage: 400 MG, UNK
     Dates: start: 20100122
  18. AVELOX [Suspect]
     Active Substance: MOXIFLOXACIN HYDROCHLORIDE
     Dosage: 400 MG, UNK
     Dates: start: 20100405
  19. CIPRO [Suspect]
     Active Substance: CIPROFLOXACIN HYDROCHLORIDE
     Dosage: 500 MG, UNK
     Route: 048
     Dates: start: 20120531
  20. CIPRO [Suspect]
     Active Substance: CIPROFLOXACIN HYDROCHLORIDE
     Dosage: 500 MG, UNK
     Route: 048
     Dates: start: 20160122
  21. HYDROCODONE;PARACETAMOL [Concomitant]
     Dosage: UNK

REACTIONS (1)
  - Aortic dissection [None]

NARRATIVE: CASE EVENT DATE: 20101228
